FAERS Safety Report 10540452 (Version 1)
Quarter: 2014Q4

REPORT INFORMATION
  Report Type: Other
  Country: GB (occurrence: GB)
  Receive Date: 20141024
  Receipt Date: 20141024
  Transmission Date: 20150529
  Serious: Yes (Other)
  Sender: FDA-Public Use
  Company Number: GB-BRISTOL-MYERS SQUIBB COMPANY-21505789

PATIENT
  Age: 62 Year
  Sex: Male

DRUGS (5)
  1. PROMETHAZINE [Concomitant]
     Active Substance: PROMETHAZINE\PROMETHAZINE HYDROCHLORIDE
  2. ZOPICLONE [Concomitant]
     Active Substance: ZOPICLONE
  3. AMILORIDE [Concomitant]
     Active Substance: AMILORIDE
  4. DASATINIB [Suspect]
     Active Substance: DASATINIB
     Indication: CHRONIC MYELOID LEUKAEMIA
     Dosage: 25 MG/DAY ON ALTERNATE WEEKS
  5. VENLAFAXINE HCL [Concomitant]
     Active Substance: VENLAFAXINE HYDROCHLORIDE

REACTIONS (3)
  - Suicide attempt [Recovering/Resolving]
  - Agitation [Recovering/Resolving]
  - Depression [Recovering/Resolving]
